FAERS Safety Report 8089635-5 (Version None)
Quarter: 2012Q1

REPORT INFORMATION
  Report Type: 
  Country: None (occurrence: None)
  Receive Date: 20120128
  Receipt Date: 20110620
  Transmission Date: 20120608
  Serious: Yes (Other)
  Sender: FDA-Public Use
  Company Number: US-ABBOTT-11P-163-0726155-00

PATIENT
  Sex: Male
  Weight: 86.26 kg

DRUGS (3)
  1. HUMIRA [Suspect]
     Route: 058
     Dates: start: 20090101
  2. METHOTREXATE [Suspect]
     Indication: PSORIATIC ARTHROPATHY
     Dosage: 6 OR 7 PILLS PER WEEK
     Route: 048
     Dates: start: 20100701, end: 20100701
  3. HUMIRA [Suspect]
     Indication: PSORIATIC ARTHROPATHY
     Route: 058
     Dates: start: 20100401, end: 20100701

REACTIONS (11)
  - DRUG INEFFECTIVE [None]
  - HEPATIC ENZYME INCREASED [None]
  - PRURITUS [None]
  - NEPHROLITHIASIS [None]
  - HAEMORRHAGE [None]
  - MALAISE [None]
  - RASH [None]
  - SKIN BURNING SENSATION [None]
  - SKIN CANCER [None]
  - ERYTHEMA [None]
  - FEELING HOT [None]
